FAERS Safety Report 7979980-3 (Version None)
Quarter: 2011Q4

REPORT INFORMATION
  Report Type: 
  Country: None (occurrence: None)
  Receive Date: 20111214
  Receipt Date: 20111202
  Transmission Date: 20120403
  Serious: Yes (Hospitalization, Other)
  Sender: FDA-Public Use
  Company Number: PHHY2011JP099304

PATIENT
  Age: 72 Year
  Sex: Male

DRUGS (1)
  1. IMATINIB MESYLATE [Suspect]
     Indication: CHRONIC MYELOID LEUKAEMIA
     Dosage: UNK
     Route: 048
     Dates: start: 20050101

REACTIONS (9)
  - OEDEMA [None]
  - ASCITES [None]
  - PERICARDIAL EFFUSION [None]
  - BLOOD PRESSURE DECREASED [None]
  - RENAL IMPAIRMENT [None]
  - HYPOTHYROIDISM [None]
  - PLEURAL EFFUSION [None]
  - RENAL FAILURE ACUTE [None]
  - ANAEMIA [None]
